FAERS Safety Report 8322987-7 (Version None)
Quarter: 2012Q2

REPORT INFORMATION
  Report Type: 
  Country: None (occurrence: None)
  Receive Date: 20120430
  Receipt Date: 20081008
  Transmission Date: 20120825
  Serious: Yes (Other)
  Sender: FDA-Public Use
  Company Number: US-TEVA-US024832

PATIENT
  Sex: Female
  Weight: 65.83 kg

DRUGS (2)
  1. PROVIGIL [Suspect]
     Indication: NARCOLEPSY
     Dosage: 200 MILLIGRAM;
     Route: 048
     Dates: start: 20070101
  2. LEXAPRO [Concomitant]
     Indication: DEPRESSION
     Dosage: 20 MILLIGRAM;
     Route: 048
     Dates: start: 20030101

REACTIONS (2)
  - RASH [None]
  - SKIN EXFOLIATION [None]
